FAERS Safety Report 8491203-8 (Version None)
Quarter: 2012Q3

REPORT INFORMATION
  Report Type: 
  Country: None (occurrence: None)
  Receive Date: 20120706
  Receipt Date: 20120625
  Transmission Date: 20120928
  Serious: Yes (Other)
  Sender: FDA-Public Use
  Company Number: US-SANOFI-AVENTIS-2012SA045479

PATIENT
  Age: 55 Year
  Sex: Male

DRUGS (3)
  1. MONOPRIL [Concomitant]
  2. MONOPRIL [Concomitant]
  3. ALLEGRA [Suspect]

REACTIONS (3)
  - MYOCARDIAL INFARCTION [None]
  - HYPOTENSION [None]
  - DIZZINESS [None]
